FAERS Safety Report 9912820 (Version 1)
Quarter: 2014Q1

REPORT INFORMATION
  Report Type: Spontaneous
  Country: IT (occurrence: None)
  Receive Date: 20140214
  Receipt Date: 20140214
  Transmission Date: 20141002
  Serious: Yes (Hospitalization)
  Sender: FDA-Public Use
  Company Number: AUR-APL-2014-01387

PATIENT
  Age: 75 Year
  Sex: Female

DRUGS (9)
  1. LAMOTRIGINE (LAMOTRIGINE) [Suspect]
     Indication: EPILEPSY
     Dosage: 1 D
     Route: 048
  2. LANSOX (LANSOPRAZOLE) [Concomitant]
  3. DILATREND (CARVEDILOL) [Concomitant]
  4. LASIX (FUROSEMIDE) [Concomitant]
  5. ENAPREN (ENALAPRIL MALEATE) [Concomitant]
  6. ZOLOFT (SERTRALINE HYDROCHLORIDE) [Concomitant]
  7. TORVAST (ATORVASTATIN CALCIUM) [Concomitant]
  8. CARDIOASPIRIN (ACETYLSALICYLIC ACID) [Concomitant]
  9. LAMICTAL (LAMOTRIGINE) [Concomitant]

REACTIONS (2)
  - Cardiac failure [None]
  - Epilepsy [None]
